FAERS Safety Report 18556339 (Version 1)
Quarter: 2020Q4

REPORT INFORMATION
  Report Type: Spontaneous
  Country: GB (occurrence: GB)
  Receive Date: 20201128
  Receipt Date: 20201128
  Transmission Date: 20210114
  Serious: Yes (Other)
  Sender: FDA-Public Use
  Company Number: GB-009507513-2011GBR016024

PATIENT
  Age: 74 Year
  Sex: Male

DRUGS (8)
  1. BENDROFLUMETHIAZIDE [Concomitant]
     Active Substance: BENDROFLUMETHIAZIDE
     Dates: start: 20130729
  2. LISINOPRIL. [Suspect]
     Active Substance: LISINOPRIL
     Route: 048
     Dates: start: 20131014
  3. OMEPRAZOLE. [Concomitant]
     Active Substance: OMEPRAZOLE
     Dates: start: 20130729
  4. ALFUZOSIN HYDROCHLORIDE. [Concomitant]
     Active Substance: ALFUZOSIN HYDROCHLORIDE
     Dates: start: 20130729
  5. SIMVASTATIN. [Concomitant]
     Active Substance: SIMVASTATIN
     Dates: start: 20130729
  6. TRIMETHOPRIM. [Concomitant]
     Active Substance: TRIMETHOPRIM
     Dates: start: 20131031, end: 20131107
  7. ATENOLOL. [Concomitant]
     Active Substance: ATENOLOL
     Dates: start: 20130729
  8. FINASTERIDE. [Concomitant]
     Active Substance: FINASTERIDE
     Dates: start: 20130729

REACTIONS (3)
  - Peripheral coldness [Unknown]
  - Swelling face [Recovered/Resolved]
  - Cyanosis [Unknown]

NARRATIVE: CASE EVENT DATE: 20131107
